FAERS Safety Report 9884952 (Version 1)
Quarter: 2014Q1

REPORT INFORMATION
  Report Type: Spontaneous
  Country: US (occurrence: US)
  Receive Date: 20140210
  Receipt Date: 20140210
  Transmission Date: 20141002
  Serious: Yes (Hospitalization, Other)
  Sender: FDA-Public Use
  Company Number: US-009507513-1402USA001656

PATIENT
  Age: 78 Year
  Sex: Female

DRUGS (11)
  1. FUROSEMIDE [Suspect]
     Dosage: UNK
  2. FUROSEMIDE [Suspect]
     Dosage: TOTAL DOSE OF 60 MG DAILY
  3. PRINIVIL [Suspect]
     Dosage: UNK
  4. PRINIVIL [Suspect]
     Dosage: UNK
  5. ZOCOR [Concomitant]
  6. METFORMIN [Concomitant]
  7. CITALOPRAM [Concomitant]
  8. GABAPENTIN [Concomitant]
  9. FLUTICASONE PROPIONATE [Concomitant]
  10. PROVENTIL [Concomitant]
  11. METOLAZONE [Concomitant]

REACTIONS (1)
  - Renal failure acute [Unknown]
